FAERS Safety Report 6977216-3 (Version None)
Quarter: 2010Q3

REPORT INFORMATION
  Report Type: 
  Country: None (occurrence: None)
  Receive Date: 20100910
  Receipt Date: 20100907
  Transmission Date: 20110219
  Serious: No
  Sender: FDA-Public Use
  Company Number: US-TEVA-244462USA

PATIENT
  Sex: Female

DRUGS (4)
  1. COPAXONE [Suspect]
     Indication: MULTIPLE SCLEROSIS
     Route: 058
  2. B-KOMPLEX [Concomitant]
  3. ERGOCALCIFEROL [Concomitant]
  4. SOLIFENACIN [Concomitant]

REACTIONS (1)
  - VARICELLA [None]
